FAERS Safety Report 17152726 (Version 1)
Quarter: 2019Q4

REPORT INFORMATION
  Report Type: Spontaneous
  Country: US (occurrence: US)
  Receive Date: 20191213
  Receipt Date: 20191213
  Transmission Date: 20200122
  Serious: Yes (Other)
  Sender: FDA-Public Use
  Company Number: US-ELI_LILLY_AND_COMPANY-US201912003317

PATIENT
  Sex: Female

DRUGS (2)
  1. HUMATROPE [Suspect]
     Active Substance: SOMATROPIN
     Indication: GROWTH HORMONE DEFICIENCY
     Dosage: 0.3 MG, DAILY
     Route: 058
  2. CORTISOL [HYDROCORTISONE SODIUM SUCCINATE] [Concomitant]
     Indication: HORMONE REPLACEMENT THERAPY
     Dosage: 4 DOSAGE FORM, DAILY

REACTIONS (6)
  - Incorrect dose administered [Unknown]
  - Memory impairment [Unknown]
  - Wrong technique in product usage process [Unknown]
  - Accidental overdose [Unknown]
  - White matter lesion [Unknown]
  - Dementia [Unknown]
